FAERS Safety Report 12693618 (Version 1)
Quarter: 2016Q3

REPORT INFORMATION
  Report Type: Spontaneous
  Country: US (occurrence: None)
  Receive Date: 20160826
  Receipt Date: 20160826
  Transmission Date: 20161109
  Serious: Yes (Hospitalization)
  Sender: FDA-Public Use
  Company Number: None

PATIENT
  Age: 75 Year
  Sex: Female

DRUGS (5)
  1. MYCOPHENOLATE 250MG CAP TEVA PHARMACEUTICALS [Suspect]
     Active Substance: MYCOPHENOLATE MOFETIL
     Route: 048
     Dates: start: 201601, end: 201607
  2. ATROPINE. [Concomitant]
     Active Substance: ATROPINE
  3. AMIODARONE [Concomitant]
     Active Substance: AMIODARONE
  4. TACROLIMUS 1MG CAP [Suspect]
     Active Substance: TACROLIMUS
     Route: 048
     Dates: start: 201601, end: 201607
  5. LORAZAPAM [Concomitant]
     Active Substance: LORAZEPAM

REACTIONS (3)
  - Nausea [None]
  - Infection [None]
  - Decubitus ulcer [None]

NARRATIVE: CASE EVENT DATE: 2016
